FAERS Safety Report 4935425-9 (Version None)
Quarter: 2006Q1

REPORT INFORMATION
  Report Type: 
  Country: None (occurrence: None)
  Receive Date: 20060307
  Receipt Date: 20060224
  Transmission Date: 20060701
  Serious: Yes (Hospitalization)
  Sender: FDA-Public Use
  Company Number: GB-GLAXOSMITHKLINE-B0413496A

PATIENT
  Age: 54 Year
  Sex: Male

DRUGS (1)
  1. MALARONE [Suspect]
     Indication: DRUG USE FOR UNKNOWN INDICATION
     Route: 048

REACTIONS (9)
  - BLOOD SODIUM [None]
  - BLOOD SODIUM DECREASED [None]
  - BRAIN OEDEMA [None]
  - CONVULSION [None]
  - DEHYDRATION [None]
  - LOSS OF CONSCIOUSNESS [None]
  - MALAISE [None]
  - VOMITING [None]
  - WATER INTOXICATION [None]
